FAERS Safety Report 7519151-8 (Version None)
Quarter: 2011Q2

REPORT INFORMATION
  Report Type: 
  Country: None (occurrence: None)
  Receive Date: 20110602
  Receipt Date: 20110527
  Transmission Date: 20111010
  Serious: Yes (Hospitalization)
  Sender: FDA-Public Use
  Company Number: DE-ROCHE-767877

PATIENT
  Sex: Female
  Weight: 66 kg

DRUGS (14)
  1. TORSEMIDE [Concomitant]
     Dosage: DOSE FORM : 10 MG
  2. ALDACTONE [Concomitant]
  3. BEVACIZUMAB [Suspect]
     Dosage: DOSAGE FORM : INFUSION LAST DOSE PRIOR TO SAE: 13 APRIL 2011.
     Route: 042
  4. FLUOROURACIL [Suspect]
     Dosage: DOSAGE FORM: INFUSION, LAST DOSE PRIOR TO SAE: 13 APRIL 2011.
     Route: 042
     Dates: start: 20110217
  5. RAMIPRIL [Concomitant]
  6. BISOPROLOL FUMARATE [Concomitant]
  7. METAMIZOL [Concomitant]
     Dosage: AS ON DEMAND. TDD: 30 TIP
  8. BEVACIZUMAB [Suspect]
     Dosage: DOSAGE FORM: 5 MG/KG. LAST DOSE PRIOR TO SAE: 10 MARCH 2011.
     Route: 042
     Dates: start: 20110217
  9. OXALIPLATIN [Suspect]
     Dosage: DOSAGE FORM: 85 MG/M2 LAST DOSE PRIOR TO SAE: 10 MARCH 2011.
     Route: 042
     Dates: start: 20110210
  10. OXALIPLATIN [Suspect]
     Dosage: DOSE REDUCED, DOSAGE FORM: INFUSION. LAST DOSE PRIOR TO SAE: 13 APRIL 2011.
     Route: 042
     Dates: start: 20110217
  11. FLUOROURACIL [Suspect]
     Dosage: DOSAGE FORM: 2400 MG/M2. LAST DOSE PRIOR TO SAE: 10 MARCH 2011.
     Route: 042
     Dates: start: 20110210
  12. LEUCOVORIN CALCIUM [Suspect]
     Dosage: DOSAGE FORM: 400 MG/M2 LAST DOSE PRIOR TO SAE: 10 MARCH 2011.
     Route: 042
     Dates: start: 20110210
  13. LEUCOVORIN CALCIUM [Suspect]
     Dosage: DOSAGE FORM: INFUSION. LAST DOSE PRIOR TO SAE: 13 APRIL 2011.
     Route: 042
     Dates: start: 20110217
  14. BISOPROLOL FUMARATE [Concomitant]
     Dosage: DOSE FORM: 5 MG

REACTIONS (3)
  - GENERAL PHYSICAL HEALTH DETERIORATION [None]
  - DEHYDRATION [None]
  - INFECTION [None]
